FAERS Safety Report 5600592-0 (Version None)
Quarter: 2008Q1

REPORT INFORMATION
  Report Type: 
  Country: None (occurrence: None)
  Receive Date: 20080123
  Receipt Date: 20080114
  Transmission Date: 20080703
  Serious: Yes (Life-Threatening)
  Sender: FDA-Public Use
  Company Number: PT-SANOFI-SYNTHELABO-A01200712425

PATIENT
  Sex: Male
  Weight: 60 kg

DRUGS (16)
  1. CAPTOPRIL [Concomitant]
     Indication: HYPERTENSION
     Dosage: 25 MG
     Route: 048
  2. ONDANSETRON HYDROCHLORIDE [Concomitant]
     Indication: COLON CANCER METASTATIC
     Route: 041
     Dates: start: 20070924
  3. IBUPROFEN [Concomitant]
     Indication: PAIN
     Dosage: UNK
     Route: 048
     Dates: start: 20070601, end: 20070901
  4. TAMSULOSIN HCL [Concomitant]
     Indication: BENIGN PROSTATIC HYPERPLASIA
     Dosage: 4 MG
     Route: 048
  5. VENLAFAXINE HYDROCHLORIDE [Concomitant]
     Indication: DEPRESSION
     Dosage: 75 MG
     Route: 048
  6. CLOPIDOGREL [Concomitant]
     Indication: PROPHYLAXIS
     Dosage: 75 MG
     Route: 048
  7. DEXAMETHASONE SODIUM PHOSPHATE [Concomitant]
     Indication: COLON CANCER METASTATIC
     Route: 041
     Dates: start: 20070924
  8. FLUOROURACIL [Concomitant]
     Indication: COLON CANCER METASTATIC
     Route: 040
     Dates: start: 20071105, end: 20071105
  9. FLUOROURACIL [Concomitant]
     Route: 041
     Dates: start: 20071105, end: 20071106
  10. CALCIUM LEVOFOLINATE [Concomitant]
     Indication: COLON CANCER METASTATIC
     Route: 041
     Dates: start: 20071105, end: 20071105
  11. ELOXATIN [Suspect]
     Indication: COLON CANCER
     Route: 041
     Dates: start: 20071105, end: 20071105
  12. BUPRENORPHINE HCL [Concomitant]
     Indication: PAIN
     Dosage: UNK
     Route: 062
     Dates: start: 20070901
  13. LANSOPRAZOLE [Concomitant]
     Indication: PROPHYLAXIS
     Dosage: 1 DF
     Route: 048
  14. ZOLPIDEM TARTRATE [Concomitant]
     Indication: INSOMNIA
     Dosage: 10 MG
     Route: 048
  15. ATORVASTATIN CALCIUM [Concomitant]
     Indication: HYPERLIPIDAEMIA
     Dosage: 20 MG
     Route: 048
  16. LOSARTAN/HYDROCHLOROTHIAZIDE [Concomitant]
     Indication: HYPERTENSION
     Dosage: LOSARTAN 100 MG+HYDROCHLOROTHIAZIDE 25 MG 125 MG
     Route: 048

REACTIONS (6)
  - CATHETER SITE ERYTHEMA [None]
  - CHEST PAIN [None]
  - HYPOTENSION [None]
  - PALMAR ERYTHEMA [None]
  - PERIORBITAL OEDEMA [None]
  - PRURITUS [None]
